FAERS Safety Report 16971451 (Version 1)
Quarter: 2019Q4

REPORT INFORMATION
  Report Type: Report from Study
  Country: US (occurrence: US)
  Receive Date: 20191029
  Receipt Date: 20191029
  Transmission Date: 20200122
  Serious: Yes (Hospitalization, Other)
  Sender: FDA-Public Use
  Company Number: US-GILEAD-2019-0435091

PATIENT
  Age: 18 Year
  Sex: Male

DRUGS (1)
  1. AZTREONAM LYSINE [Suspect]
     Active Substance: AZTREONAM LYSINE
     Indication: CYSTIC FIBROSIS
     Dosage: 75 MG, TID FOR 28 DAYS ON THEN OFF FOR 28 DAYS
     Route: 048
     Dates: start: 201806

REACTIONS (3)
  - Weight decreased [Recovering/Resolving]
  - Pulmonary function test decreased [Recovering/Resolving]
  - Cystic fibrosis [Recovering/Resolving]
